FAERS Safety Report 24217977 (Version 1)
Quarter: 2024Q3

REPORT INFORMATION
  Report Type: Spontaneous
  Country: US (occurrence: US)
  Receive Date: 20240816
  Receipt Date: 20240816
  Transmission Date: 20241017
  Serious: Yes (Death)
  Sender: CHIESI
  Company Number: US-CHIESI-2024CHF05150

PATIENT
  Age: 20 Year
  Sex: Female
  Weight: 42.6 kg

DRUGS (2)
  1. FERRIPROX [Suspect]
     Active Substance: DEFERIPRONE
     Indication: Neurodegeneration with brain iron accumulation disorder
     Dosage: 6 MILLILITER, BID
     Dates: start: 20210401
  2. FERRIPROX [Suspect]
     Active Substance: DEFERIPRONE
     Indication: Off label use

REACTIONS (3)
  - Death [Fatal]
  - Off label use [Recovered/Resolved]
  - Off label use [Recovered/Resolved]

NARRATIVE: CASE EVENT DATE: 20210401
